FAERS Safety Report 9339323 (Version 1)
Quarter: 2013Q2

REPORT INFORMATION
  Report Type: Report from Study
  Country: CA (occurrence: CA)
  Receive Date: 20130610
  Receipt Date: 20130610
  Transmission Date: 20140414
  Serious: Yes (Hospitalization)
  Sender: FDA-Public Use
  Company Number: CA-JNJFOC-20130523177

PATIENT
  Sex: Male

DRUGS (5)
  1. STELARA [Suspect]
     Indication: CROHN^S DISEASE
     Dates: start: 20130430, end: 20130430
  2. STELARA [Suspect]
     Indication: CROHN^S DISEASE
     Dates: start: 20130514, end: 20130514
  3. STELARA [Suspect]
     Indication: CROHN^S DISEASE
     Dates: start: 20130507, end: 20130507
  4. PREDNISONE [Concomitant]
     Route: 048
  5. IMURAN [Concomitant]
     Dates: start: 200901

REACTIONS (3)
  - Overdose [Unknown]
  - Drug effect incomplete [Unknown]
  - Off label use [Unknown]
